FAERS Safety Report 4611017-6 (Version None)
Quarter: 2005Q1

REPORT INFORMATION
  Report Type: 
  Country: None (occurrence: None)
  Receive Date: 20050316
  Receipt Date: 20050316
  Transmission Date: 20050727
  Serious: No
  Sender: FDA-Public Use
  Company Number: None

PATIENT
  Sex: Male
  Weight: 81 kg

DRUGS (3)
  1. FLUOROURACIL [Suspect]
     Dates: start: 20050103, end: 20050204
  2. LEUCOVORIN [Suspect]
     Dates: start: 20041206
  3. EXTERNAL BEAM 3D [Concomitant]

REACTIONS (8)
  - DEHYDRATION [None]
  - DISEASE RECURRENCE [None]
  - FEELING ABNORMAL [None]
  - METASTATIC NEOPLASM [None]
  - NAUSEA [None]
  - RESPIRATORY FAILURE [None]
  - SMALL INTESTINAL OBSTRUCTION [None]
  - VOMITING [None]
